FAERS Safety Report 13061593 (Version 1)
Quarter: 2016Q4

REPORT INFORMATION
  Report Type: Spontaneous
  Country: US (occurrence: US)
  Receive Date: 20161226
  Receipt Date: 20161226
  Transmission Date: 20170207
  Serious: No
  Sender: FDA-Public Use
  Company Number: US-NOVEN PHARMACEUTICALS, INC.-US2016001147

PATIENT

DRUGS (7)
  1. LAMICTAL [Concomitant]
     Active Substance: LAMOTRIGINE
  2. VIVELLE-DOT [Concomitant]
     Active Substance: ESTRADIOL
  3. SPIRONOLACTONE. [Concomitant]
     Active Substance: SPIRONOLACTONE
  4. MINIVELLE [Suspect]
     Active Substance: ESTRADIOL
     Dosage: PRESCRIBED TO USE TWO STRENGTHS (0.1MG + 0.05MG) TOGETHER, UNKNOWN
     Route: 062
  5. PROBIOTICS [Concomitant]
     Active Substance: PROBIOTICS NOS
  6. MINIVELLE [Suspect]
     Active Substance: ESTRADIOL
     Indication: HORMONE REPLACEMENT THERAPY
     Dosage: UNK, UNKNOWN
     Route: 062
     Dates: start: 2015
  7. MULTIVITAMINS [Concomitant]
     Active Substance: VITAMINS

REACTIONS (2)
  - Off label use [Unknown]
  - No adverse event [Unknown]
